FAERS Safety Report 6216034-0 (Version None)
Quarter: 2009Q2

REPORT INFORMATION
  Report Type: 
  Country: None (occurrence: None)
  Receive Date: 20090605
  Receipt Date: 20090526
  Transmission Date: 20091009
  Serious: Yes (Hospitalization, Other)
  Sender: FDA-Public Use
  Company Number: PHHO2004CA12919

PATIENT
  Sex: Male

DRUGS (31)
  1. CLOZARIL [Suspect]
     Indication: SCHIZOPHRENIA
     Dosage: 400 MG/DAY
     Route: 048
     Dates: start: 20040615
  2. CLOZARIL [Suspect]
     Dosage: 600 MG/DAY
     Route: 048
  3. CLOZARIL [Suspect]
     Dosage: 250 MG/DAILY
     Route: 048
  4. CLOZARIL [Suspect]
     Dosage: 650MG AT BED TIME
     Route: 048
  5. SEROQUEL [Concomitant]
     Dosage: 700 MG/DAY
  6. LIPITOR [Concomitant]
     Dosage: 10 MG/DAILY
  7. LIPITOR [Concomitant]
     Dosage: 20 MG DAILY
  8. CELEBREX [Concomitant]
     Dosage: 400 MG/DAILY
  9. CELEBREX [Concomitant]
     Dosage: 200 MG DAILY
  10. AVANDIA [Concomitant]
     Dosage: 4 MG, QID
  11. HALDOL [Concomitant]
     Dosage: 8 MG, QD
  12. CLOMIPRAMINE HCL [Concomitant]
     Dosage: 125 MG/AM
  13. CLOMIPRAMINE HCL [Concomitant]
     Dosage: 100MG/DAY
  14. IMOVANE [Concomitant]
     Dosage: 15 MG H.S.
  15. IMOVANE [Concomitant]
     Dosage: 7.5MG/DAY
  16. NIZATIDINE [Concomitant]
     Dosage: 150 MG, BID
  17. PARSITAN [Concomitant]
     Dosage: 100 MG, QD
  18. CLONAZEPAM [Concomitant]
     Dosage: 4 MG, QD
  19. CLONAZEPAM [Concomitant]
     Dosage: 0.5 MG, QID
  20. PROCYCLIDINE HYDROCHLORIDE 2MG TAB [Concomitant]
     Dosage: 5 MG, BID
  21. SERTRALINE HCL [Concomitant]
     Dosage: 150MG/DAY
  22. SERTRALINE HCL [Concomitant]
     Dosage: 200 MG EVERY SUPPER
  23. RISPERDAL [Concomitant]
     Dosage: 2 MG PERDAY
  24. INVEGA [Concomitant]
     Dosage: 3 MG EVERY SUPPER
  25. LORAZEPAM [Concomitant]
     Indication: PANIC ATTACK
     Dosage: 1-2MG EVERY 20 MINS AS NEEDED
  26. MINIRIN [Concomitant]
  27. AVANDAMET [Concomitant]
     Dosage: 2000 MG
  28. ATIVAN [Concomitant]
     Dosage: 0.2 MG/DAY
  29. ZOPICLONE [Concomitant]
     Dosage: 7.5 MG DAILY
  30. CLORAZEPATE DIPOTASSIUM [Concomitant]
     Dosage: 2 MG/DAY
  31. DESMOPRESSIN ACETATE [Concomitant]
     Dosage: 0.2 MG DAILY

REACTIONS (14)
  - ANAEMIA [None]
  - BLOOD GLUCOSE INCREASED [None]
  - DELUSION [None]
  - DISORIENTATION [None]
  - DRUG INEFFECTIVE [None]
  - DYSARTHRIA [None]
  - HAEMOGLOBIN DECREASED [None]
  - HALLUCINATION, AUDITORY [None]
  - HYPONATRAEMIA [None]
  - LUNG DISORDER [None]
  - PNEUMOCOCCAL BACTERAEMIA [None]
  - PNEUMONIA PNEUMOCOCCAL [None]
  - PSYCHOTIC DISORDER [None]
  - SEDATION [None]
